FAERS Safety Report 21382663 (Version 12)
Quarter: 2023Q2

REPORT INFORMATION
  Report Type: Report from Study
  Country: TW (occurrence: None)
  Receive Date: 20220927
  Receipt Date: 20230628
  Transmission Date: 20230721
  Serious: Yes (Hospitalization)
  Sender: FDA-Public Use
  Company Number: TW-ROCHE-3181244

PATIENT
  Age: 51 Year
  Sex: Male
  Weight: 55.1 kg

DRUGS (34)
  1. SATRALIZUMAB [Suspect]
     Active Substance: SATRALIZUMAB
     Indication: Neuromyelitis optica spectrum disorder
     Dosage: ON 15/AUG/2022 TO 12/SEP/2022 11:42 AM, MOST RECENT DOSE OF STUDY DRUG PRIOR TO AE/SAE
     Route: 058
     Dates: start: 20210621
  2. RIVOTRIL [Concomitant]
     Active Substance: CLONAZEPAM
     Indication: Neuromyelitis optica spectrum disorder
     Route: 048
     Dates: start: 20220913, end: 20220916
  3. RIVOTRIL [Concomitant]
     Active Substance: CLONAZEPAM
     Indication: Pain
     Route: 048
     Dates: start: 20220917
  4. RIVOTRIL [Concomitant]
     Active Substance: CLONAZEPAM
     Route: 048
     Dates: end: 20220913
  5. PREGABALIN [Concomitant]
     Active Substance: PREGABALIN
     Indication: Neuromyelitis optica spectrum disorder
     Route: 048
  6. PREGABALIN [Concomitant]
     Active Substance: PREGABALIN
     Indication: Pain
  7. METHYLCOBALAMIN [Concomitant]
     Active Substance: METHYLCOBALAMIN
     Indication: Neuromyelitis optica spectrum disorder
     Route: 048
     Dates: start: 20180918
  8. METHYLCOBALAMIN [Concomitant]
     Active Substance: METHYLCOBALAMIN
     Indication: Pain
  9. OXCARBAZEPINE [Concomitant]
     Active Substance: OXCARBAZEPINE
     Indication: Neuromyelitis optica spectrum disorder
     Route: 048
     Dates: start: 20210324, end: 20220916
  10. OXCARBAZEPINE [Concomitant]
     Active Substance: OXCARBAZEPINE
     Indication: Pain
     Route: 048
     Dates: start: 20220917
  11. TRAMADOL [Concomitant]
     Active Substance: TRAMADOL
     Indication: Neuromyelitis optica spectrum disorder
     Route: 048
     Dates: start: 20210324, end: 20220913
  12. TRAMADOL [Concomitant]
     Active Substance: TRAMADOL
     Indication: Pain
     Route: 048
     Dates: start: 20220913
  13. TRAMADOL [Concomitant]
     Active Substance: TRAMADOL
     Route: 048
     Dates: start: 20220917
  14. ACETAMINOPHEN [Concomitant]
     Active Substance: ACETAMINOPHEN
     Indication: Neuromyelitis optica spectrum disorder
     Route: 048
     Dates: start: 20210324, end: 20220913
  15. ACETAMINOPHEN [Concomitant]
     Active Substance: ACETAMINOPHEN
     Indication: Pain
     Route: 048
     Dates: start: 20220913, end: 20220916
  16. ACETAMINOPHEN [Concomitant]
     Active Substance: ACETAMINOPHEN
     Route: 048
     Dates: start: 20220917
  17. ACETAMINOPHEN [Concomitant]
     Active Substance: ACETAMINOPHEN
     Route: 048
     Dates: start: 20230406
  18. PIRENOXINE [Concomitant]
     Active Substance: PIRENOXINE
     Indication: Neuromyelitis optica spectrum disorder
     Route: 047
  19. PIRENOXINE [Concomitant]
     Active Substance: PIRENOXINE
     Indication: Pain
  20. BRINZOLAMIDE [Concomitant]
     Active Substance: BRINZOLAMIDE
     Indication: Neuromyelitis optica spectrum disorder
     Route: 047
  21. BRINZOLAMIDE [Concomitant]
     Active Substance: BRINZOLAMIDE
     Indication: Pain
  22. BRIMONIDINE TARTRATE [Concomitant]
     Active Substance: BRIMONIDINE TARTRATE
     Indication: Neuromyelitis optica spectrum disorder
     Route: 047
  23. BRIMONIDINE TARTRATE [Concomitant]
     Active Substance: BRIMONIDINE TARTRATE
     Indication: Pain
  24. ETHAMBUTOL [Concomitant]
     Active Substance: ETHAMBUTOL HYDROCHLORIDE
     Indication: Neuromyelitis optica spectrum disorder
     Route: 048
     Dates: start: 20221017, end: 20221114
  25. RIFAMPIN [Concomitant]
     Active Substance: RIFAMPIN
     Indication: Neuromyelitis optica spectrum disorder
     Route: 048
     Dates: start: 20221017, end: 20221114
  26. ISONIAZID [Concomitant]
     Active Substance: ISONIAZID
     Indication: Neuromyelitis optica spectrum disorder
     Route: 003
     Dates: start: 20221017, end: 20221114
  27. ISONIAZID [Concomitant]
     Active Substance: ISONIAZID
     Route: 048
     Dates: start: 20230321
  28. MOSAPRIDE [Concomitant]
     Active Substance: MOSAPRIDE
     Indication: Abdominal discomfort
     Route: 048
     Dates: start: 20221115, end: 20221121
  29. CLARITHROMYCIN [Concomitant]
     Active Substance: CLARITHROMYCIN
     Route: 048
     Dates: start: 20221115, end: 20221212
  30. RIFABUTIN [Concomitant]
     Active Substance: RIFABUTIN
     Route: 048
     Dates: start: 20221115, end: 20230207
  31. AZITHROMYCIN [Concomitant]
     Active Substance: AZITHROMYCIN
     Route: 048
     Dates: start: 20221213, end: 20230207
  32. AZITHROMYCIN [Concomitant]
     Active Substance: AZITHROMYCIN
     Route: 048
     Dates: start: 20230221, end: 20230320
  33. MONTMORILLONITE [Concomitant]
     Active Substance: MONTMORILLONITE
     Route: 048
     Dates: start: 20221213
  34. PYRIDOXINE [Concomitant]
     Active Substance: PYRIDOXINE
     Route: 048
     Dates: start: 20221213

REACTIONS (2)
  - Atypical mycobacterial infection [Recovering/Resolving]
  - Intervertebral disc protrusion [Not Recovered/Not Resolved]

NARRATIVE: CASE EVENT DATE: 20220908
